FAERS Safety Report 8979192 (Version 1)
Quarter: 2012Q4

REPORT INFORMATION
  Report Type: Report from Study
  Country: ES (occurrence: ES)
  Receive Date: 20121221
  Receipt Date: 20121221
  Transmission Date: 20130627
  Serious: Yes (Hospitalization)
  Sender: FDA-Public Use
  Company Number: ES-ASTELLAS-2012EU010875

PATIENT
  Age: 65 Year
  Sex: Male
  Weight: 95 kg

DRUGS (18)
  1. TACROLIMUS SYSTEMIC [Suspect]
     Indication: PROPHYLAXIS AGAINST TRANSPLANT REJECTION
     Dosage: 1 mg, bid
     Route: 048
     Dates: start: 20060512
  2. MYCOPHENOLATE MOFETIL [Suspect]
     Indication: PROPHYLAXIS AGAINST TRANSPLANT REJECTION
     Dosage: 2000 mg, Unknown/D
     Route: 048
     Dates: start: 20040309, end: 20040309
  3. MYCOPHENOLATE MOFETIL [Suspect]
     Dosage: 1000 mg, bid
     Route: 048
     Dates: start: 20040310, end: 20040310
  4. MYCOPHENOLATE MOFETIL [Suspect]
     Dosage: 500 mg, bid
     Route: 048
     Dates: start: 20040712
  5. MYCOPHENOLATE MOFETIL [Suspect]
     Dosage: 500 mg, tid
     Route: 048
     Dates: start: 22040806
  6. MYCOPHENOLATE MOFETIL [Suspect]
     Dosage: 500 mg, bid
     Route: 048
     Dates: start: 20040831, end: 20060612
  7. CICLOSPORIN [Suspect]
     Indication: PROPHYLAXIS AGAINST TRANSPLANT REJECTION
     Dosage: 700 mg, Unknown/D
     Route: 048
     Dates: start: 20040309, end: 20040309
  8. CICLOSPORIN [Suspect]
     Dosage: 175 mg, bid
     Route: 048
     Dates: start: 20040310, end: 20040322
  9. CICLOSPORIN [Suspect]
     Dosage: 125 mg, bid
     Route: 048
     Dates: start: 20040323, end: 20040614
  10. CICLOSPORIN [Suspect]
     Dosage: 137.5 mg, bid
     Route: 048
     Dates: start: 22040615, end: 22040615
  11. CICLOSPORIN [Suspect]
     Dosage: 87.5 mg, bid
     Route: 048
     Dates: start: 20040515
  12. CICLOSPORIN [Suspect]
     Dosage: 125 mg, bid
     Route: 048
     Dates: start: 20040802
  13. CICLOSPORIN [Suspect]
     Dosage: 112.5 mg, bid
     Route: 048
     Dates: start: 20041213
  14. CICLOSPORIN [Suspect]
     Dosage: 100 mg, bid
     Route: 048
     Dates: start: 20050203, end: 20060512
  15. METHYLPREDNISOLONE [Suspect]
     Indication: PROPHYLAXIS AGAINST TRANSPLANT REJECTION
     Dosage: 500 mg, Unknown/D
     Route: 048
     Dates: start: 20040309, end: 20040309
  16. METHYLPREDNISOLONE [Suspect]
     Dosage: 500 mg, UID/QD
     Route: 048
     Dates: start: 20040723, end: 20040726
  17. PREDNISONE [Suspect]
     Indication: PROPHYLAXIS AGAINST TRANSPLANT REJECTION
     Dosage: 7.5 mg, UID/QD
     Route: 048
     Dates: start: 20040311, end: 20041212
  18. PREDNISONE [Suspect]
     Dosage: 5 mg, UID/QD
     Route: 048
     Dates: start: 20050713

REACTIONS (2)
  - Transplant failure [Unknown]
  - Arterial stenosis [Unknown]
